FAERS Safety Report 24716367 (Version 1)
Quarter: 2024Q4

REPORT INFORMATION
  Report Type: Spontaneous
  Country: US (occurrence: US)
  Receive Date: 20241210
  Receipt Date: 20241210
  Transmission Date: 20250114
  Serious: No
  Sender: ROCHE
  Company Number: US-ROCHE-10000149793

PATIENT
  Sex: Female
  Weight: 81.65 kg

DRUGS (1)
  1. RITUXAN [Suspect]
     Active Substance: RITUXIMAB
     Indication: Glomerulonephritis membranous
     Dosage: LAST DOSE TAKEN ON 18/OCT/2024
     Route: 042
     Dates: start: 2019

REACTIONS (4)
  - Menstruation irregular [Unknown]
  - Amenorrhoea [Not Recovered/Not Resolved]
  - Swelling face [Unknown]
  - Off label use [Unknown]
